FAERS Safety Report 15212913 (Version 1)
Quarter: 2018Q3

REPORT INFORMATION
  Report Type: Report from Study
  Country: JP (occurrence: JP)
  Receive Date: 20180730
  Receipt Date: 20180730
  Transmission Date: 20181010
  Serious: Yes (Disabling)
  Sender: FDA-Public Use
  Company Number: JP-ROCHE-2161054

PATIENT
  Age: 62 Year
  Sex: Male

DRUGS (11)
  1. PRORANON [Concomitant]
     Indication: PRODUCT USED FOR UNKNOWN INDICATION
     Dosage: UNK
     Route: 047
     Dates: start: 20090709
  2. RANIBIZUMAB. [Suspect]
     Active Substance: RANIBIZUMAB
     Indication: VITAMIN SUPPLEMENTATION
  3. ADONA (JAPAN) [Concomitant]
     Indication: AGE-RELATED MACULAR DEGENERATION
     Dosage: 90 MG, UNK
     Route: 048
  4. MUCOSTA [Concomitant]
     Active Substance: REBAMIPIDE
     Indication: PROPHYLAXIS
     Dosage: 300 DF, UNK
     Route: 048
     Dates: start: 20090709, end: 20090821
  5. LOMEFLOXACIN HYDROCHLORIDE [Concomitant]
     Active Substance: LOMEFLOXACIN HYDROCHLORIDE
     Indication: PRODUCT USED FOR UNKNOWN INDICATION
     Dosage: UNK
     Route: 047
     Dates: start: 20090709
  6. METHYCOBAL [Concomitant]
     Active Substance: METHYLCOBALAMIN
     Indication: AGE-RELATED MACULAR DEGENERATION
     Dosage: 1500 UG, UNK
     Route: 048
  7. LOXONIN [Concomitant]
     Active Substance: LOXOPROFEN SODIUM
     Indication: PROPHYLAXIS
     Dosage: 180 MG, UNK
     Route: 048
     Dates: start: 20090709, end: 20090821
  8. TARIVID [Concomitant]
     Active Substance: OFLOXACIN
     Indication: PRODUCT USED FOR UNKNOWN INDICATION
     Dosage: UNK
     Route: 065
     Dates: start: 20090709, end: 20090810
  9. RANIBIZUMAB. [Suspect]
     Active Substance: RANIBIZUMAB
     Indication: VOLUME BLOOD INCREASED
     Route: 031
     Dates: start: 20090810, end: 20090810
  10. CARNACULIN [Concomitant]
     Active Substance: KALLIDINOGENASE
     Indication: AGE-RELATED MACULAR DEGENERATION
     Dosage: 150 DF, UNK
     Route: 048
  11. RANIBIZUMAB. [Suspect]
     Active Substance: RANIBIZUMAB
     Indication: AGE-RELATED MACULAR DEGENERATION
     Route: 031
     Dates: start: 20090709, end: 20090709

REACTIONS (3)
  - Oral discomfort [Unknown]
  - Facial paralysis [Recovered/Resolved]
  - Eye disorder [Unknown]

NARRATIVE: CASE EVENT DATE: 200908
